FAERS Safety Report 21077286 (Version 1)
Quarter: 2022Q3

REPORT INFORMATION
  Report Type: Spontaneous
  Country: US (occurrence: US)
  Receive Date: 20220713
  Receipt Date: 20220713
  Transmission Date: 20221026
  Serious: No
  Sender: FDA-Public Use
  Company Number: US-PFIZER INC-202200944441

PATIENT
  Age: 55 Year
  Sex: Female

DRUGS (2)
  1. PAXLOVID [Suspect]
     Active Substance: NIRMATRELVIR\RITONAVIR
     Indication: COVID-19 treatment
     Dosage: UNK
     Dates: start: 20220709, end: 20220710
  2. CRESTOR [Concomitant]
     Active Substance: ROSUVASTATIN CALCIUM
     Dosage: UNK

REACTIONS (4)
  - Restless legs syndrome [Unknown]
  - Initial insomnia [Unknown]
  - Palpitations [Unknown]
  - Euphoric mood [Unknown]

NARRATIVE: CASE EVENT DATE: 20220709
